FAERS Safety Report 8529634-X (Version None)
Quarter: 2012Q3

REPORT INFORMATION
  Report Type: 
  Country: None (occurrence: None)
  Receive Date: 20120717
  Receipt Date: 20120717
  Transmission Date: 20120928
  Serious: No
  Sender: FDA-Public Use
  Company Number: None

PATIENT

DRUGS (2)
  1. ENOXAPARIN SODIUM [Suspect]
     Dosage: INJECTABLE INJECTION 30 MG/0.3 ML SYRINGES
     Route: 058
  2. LOVENOX [Suspect]
     Dosage: INJECTABLE INJECTION 60MG SYRINGES
     Route: 058

REACTIONS (4)
  - PRODUCT SUBSTITUTION ISSUE [None]
  - PRODUCT BARCODE ISSUE [None]
  - SYRINGE ISSUE [None]
  - MEDICATION ERROR [None]
